FAERS Safety Report 21113700 (Version 3)
Quarter: 2024Q2

REPORT INFORMATION
  Report Type: Spontaneous
  Country: CA (occurrence: None)
  Receive Date: 20220721
  Receipt Date: 20240416
  Transmission Date: 20240716
  Serious: Yes (Other)
  Sender: FDA-Public Use
  Company Number: 2021A621982

PATIENT
  Age: 47 Year
  Sex: Female

DRUGS (24)
  1. ROSUVASTATIN [Suspect]
     Active Substance: ROSUVASTATIN
     Indication: Product used for unknown indication
  2. ENTYVIO [Suspect]
     Active Substance: VEDOLIZUMAB
     Indication: Colitis ulcerative
     Dosage: 300.0 MILLIGRAM, 1 EVERY 4 WEEKS
     Route: 042
  3. ENTYVIO [Suspect]
     Active Substance: VEDOLIZUMAB
     Indication: Colitis ulcerative
     Dosage: 300.0 MILLIGRAM, 1 EVERY 4 WEEKS
     Route: 042
  4. ENTYVIO [Suspect]
     Active Substance: VEDOLIZUMAB
     Indication: Colitis ulcerative
     Route: 058
  5. ENTYVIO [Suspect]
     Active Substance: VEDOLIZUMAB
     Indication: Colitis ulcerative
     Dosage: 300.0 MILLIGRAM, 1 EVERY 4 WEEKS
     Route: 042
  6. ENTYVIO [Suspect]
     Active Substance: VEDOLIZUMAB
     Indication: Colitis ulcerative
     Dosage: 300.0 MILLIGRAM, 1 EVERY 4 WEEKS
     Route: 042
  7. ENTYVIO [Suspect]
     Active Substance: VEDOLIZUMAB
     Indication: Colitis ulcerative
     Route: 042
  8. ENTYVIO [Suspect]
     Active Substance: VEDOLIZUMAB
     Indication: Colitis ulcerative
     Dosage: 300.0 MILLIGRAM, 1 EVERY 4 WEEKS
     Route: 042
  9. ACETAMINOPHEN [Concomitant]
     Active Substance: ACETAMINOPHEN
     Indication: Premedication
     Dosage: 650.0MG UNKNOWN
     Route: 048
  10. CYMBALTA [Concomitant]
     Active Substance: DULOXETINE HYDROCHLORIDE
  11. DIAMICRON [Concomitant]
  12. ENTOCORT [Concomitant]
     Active Substance: BUDESONIDE
     Route: 065
  13. FOLIC ACID [Concomitant]
     Active Substance: FOLIC ACID
  14. GLUCOSAMINE [Concomitant]
     Active Substance: GLUCOSAMINE
  15. HUMIRA [Concomitant]
     Active Substance: ADALIMUMAB
     Route: 058
  16. IMOVANE [Concomitant]
     Active Substance: ZOPICLONE
  17. LANTUS [Concomitant]
     Active Substance: INSULIN GLARGINE
     Route: 058
  18. METHOTREXATE [Concomitant]
     Active Substance: METHOTREXATE
  19. METHYLPREDNISOLONE [Concomitant]
     Active Substance: METHYLPREDNISOLONE
     Indication: Premedication
     Dosage: 80.0MG UNKNOWN
     Route: 042
  20. NOVORAPID [Concomitant]
     Active Substance: INSULIN ASPART
     Route: 058
  21. SYNTHROID [Concomitant]
     Active Substance: LEVOTHYROXINE SODIUM
  22. TRAZODONE [Concomitant]
     Active Substance: TRAZODONE HYDROCHLORIDE
  23. VITAMIN D [Concomitant]
     Active Substance: VITAMIN D NOS
  24. WELLBUTRIN [Concomitant]
     Active Substance: BUPROPION HYDROCHLORIDE

REACTIONS (17)
  - Abnormal faeces [Not Recovered/Not Resolved]
  - Chest pain [Not Recovered/Not Resolved]
  - Diarrhoea [Not Recovered/Not Resolved]
  - Abdominal distension [Not Recovered/Not Resolved]
  - Colitis ulcerative [Not Recovered/Not Resolved]
  - Abdominal pain lower [Not Recovered/Not Resolved]
  - Constipation [Not Recovered/Not Resolved]
  - Muscle spasms [Not Recovered/Not Resolved]
  - Therapeutic reaction time decreased [Not Recovered/Not Resolved]
  - Diarrhoea [Unknown]
  - Chest pain [Unknown]
  - Abdominal pain [Not Recovered/Not Resolved]
  - Abdominal distension [Unknown]
  - Constipation [Unknown]
  - Abnormal faeces [Unknown]
  - Off label use [Not Recovered/Not Resolved]
  - Faeces soft [Not Recovered/Not Resolved]
